FAERS Safety Report 4368293-7 (Version None)
Quarter: 2004Q2

REPORT INFORMATION
  Report Type: 
  Country: None (occurrence: None)
  Receive Date: 20040525
  Receipt Date: 20040514
  Transmission Date: 20050107
  Serious: Yes (Hospitalization)
  Sender: FDA-Public Use
  Company Number: CAR 2004-004

PATIENT
  Age: 25 Year
  Sex: Male

DRUGS (7)
  1. SUCRALFATE [Suspect]
     Route: 048
     Dates: start: 19990212, end: 19990213
  2. MUCOMYST [Concomitant]
  3. RULID (ROXITHROMYCIN) [Concomitant]
  4. MOTILIUM [Concomitant]
  5. PRO-DAFALGAN (PROPACETAMOL HYDROCHLORIDE) [Concomitant]
  6. OMEPRAZOLE [Concomitant]
  7. ASPEGIC 1000 [Concomitant]

REACTIONS (2)
  - AGRANULOCYTOSIS [None]
  - MALLORY-WEISS SYNDROME [None]
